FAERS Safety Report 6136219-1 (Version None)
Quarter: 2009Q1

REPORT INFORMATION
  Report Type: 
  Country: None (occurrence: None)
  Receive Date: 20090330
  Receipt Date: 20090325
  Transmission Date: 20090719
  Serious: Yes (Death, Other)
  Sender: FDA-Public Use
  Company Number: ES-BAYER-200916694GPV

PATIENT
  Age: 52 Year
  Sex: Male
  Weight: 75 kg

DRUGS (6)
  1. ZEVALIN [Suspect]
     Indication: B-CELL LYMPHOMA
  2. YTRACIS [Suspect]
     Indication: B-CELL LYMPHOMA
  3. RITUXIMAB [Suspect]
     Indication: B-CELL LYMPHOMA
  4. FLUDARABINE PHOSPHATE [Suspect]
     Indication: B-CELL LYMPHOMA
  5. MELPHALAN [Suspect]
     Indication: B-CELL LYMPHOMA
  6. METHOTREXATE [Concomitant]

REACTIONS (6)
  - BRONCHOPULMONARY ASPERGILLOSIS [None]
  - DIARRHOEA [None]
  - LIVER INJURY [None]
  - MUCOSAL INFLAMMATION [None]
  - MULTI-ORGAN FAILURE [None]
  - NEUTROPENIA [None]
